FAERS Safety Report 8491407 (Version 3)
Quarter: 2012Q4

REPORT INFORMATION
  Report Type: 
  Country: FR (occurrence: FR)
  Receive Date: 20120403
  Receipt Date: 20121204
  Transmission Date: 20130627
  Serious: Yes (Hospitalization)
  Sender: FDA-Public Use
  Company Number: FR-VERTEX PHARMACEUTICALS INC.-000000000000000414

PATIENT
  Sex: Female

DRUGS (9)
  1. INCIVO [Suspect]
     Indication: CHRONIC HEPATITIS C
     Dosage: UNK
     Route: 048
     Dates: start: 201112, end: 20120229
  2. COPEGUS [Concomitant]
     Indication: CHRONIC HEPATITIS C
     Route: 048
     Dates: start: 201111, end: 20120312
  3. PEGASYS [Concomitant]
     Indication: CHRONIC HEPATITIS C
     Route: 058
     Dates: start: 201111
  4. PEGASYS [Concomitant]
     Dosage: UNK
     Route: 058
     Dates: start: 20120209
  5. TENORMINE [Concomitant]
     Indication: HYPERTENSION
     Dates: start: 2000
  6. LYRICA [Concomitant]
  7. COVERSYL [Concomitant]
  8. TARDYFERON [Concomitant]
  9. FUNGIZONE [Concomitant]

REACTIONS (1)
  - Pancytopenia [Unknown]
